FAERS Safety Report 23291452 (Version 1)
Quarter: 2023Q4

REPORT INFORMATION
  Report Type: Spontaneous
  Country: US (occurrence: US)
  Receive Date: 20231213
  Receipt Date: 20231213
  Transmission Date: 20240110
  Serious: No
  Sender: FDA-Public Use
  Company Number: US-ALVOGEN-2023089449

PATIENT
  Sex: Female

DRUGS (1)
  1. FENTANYL [Suspect]
     Active Substance: FENTANYL\FENTANYL CITRATE
     Indication: Pain management
     Dosage: 50MCG/HOUR, EXPIRATION DATE: APR-2025?S/N: 067159067608 ?MANUFACTURING DATE: 04-APR-2022

REACTIONS (2)
  - Restlessness [Unknown]
  - Drug ineffective [Unknown]
